FAERS Safety Report 22125341 (Version 1)
Quarter: 2023Q1

REPORT INFORMATION
  Report Type: Spontaneous
  Country: US (occurrence: US)
  Receive Date: 20230322
  Receipt Date: 20230322
  Transmission Date: 20230417
  Serious: Yes (Other)
  Sender: FDA-Public Use
  Company Number: US-GLAXOSMITHKLINE-US2023040310

PATIENT

DRUGS (1)
  1. FLOVENT HFA [Suspect]
     Active Substance: FLUTICASONE PROPIONATE
     Indication: Asthma
     Dosage: UNK FLOVENT HFA 220 MCG INH 12 GM
     Route: 055
     Dates: start: 20150101

REACTIONS (3)
  - Breast cancer [Not Recovered/Not Resolved]
  - Multiple allergies [Unknown]
  - Illness [Unknown]

NARRATIVE: CASE EVENT DATE: 20160101
